FAERS Safety Report 8983412 (Version 1)
Quarter: 2012Q4

REPORT INFORMATION
  Report Type: Report from Study
  Country: GB (occurrence: US)
  Receive Date: 20121224
  Receipt Date: 20121224
  Transmission Date: 20130627
  Serious: Yes (Other)
  Sender: FDA-Public Use
  Company Number: US-BRISTOL-MYERS SQUIBB COMPANY-14166615

PATIENT
  Age: 72 Year
  Sex: Female

DRUGS (14)
  1. IPILIMUMAB [Suspect]
     Indication: MALIGNANT MELANOMA
     Dosage: interrupted on 03-Apr-2008. 22May2008-22May2008:913MG/DAY
     Route: 042
     Dates: start: 20080403
  2. GEMFIBROZIL [Concomitant]
     Indication: HYPERLIPIDAEMIA
     Route: 048
     Dates: start: 2000
  3. KLOR-CON [Concomitant]
     Indication: BLOOD POTASSIUM
     Route: 048
     Dates: start: 2000
  4. ACIPHEX [Concomitant]
     Indication: GASTROOESOPHAGEAL REFLUX DISEASE
     Route: 048
     Dates: start: 2006
  5. ADVAIR [Concomitant]
     Dosage: Total daily dose: 100/50 (units not specified); 2 puffs (route)
     Dates: start: 2003
  6. MUCINEX [Concomitant]
     Indication: NASOPHARYNGITIS
     Dates: start: 2008
  7. ALBUTEROL [Concomitant]
     Dates: start: 2003
  8. NASONEX [Concomitant]
     Indication: HYPERSENSITIVITY
     Dates: start: 2003
  9. LEXAPRO [Concomitant]
     Indication: DEPRESSION
     Route: 048
     Dates: start: 2006
  10. LYRICA [Concomitant]
     Indication: NEUROPATHY PERIPHERAL
     Route: 048
     Dates: start: 2006
  11. OXYCODONE [Concomitant]
     Route: 048
     Dates: start: 2006
  12. VESICARE [Concomitant]
     Indication: URINARY INCONTINENCE
     Route: 048
     Dates: start: 2008
  13. AZITHROMYCIN [Concomitant]
     Indication: INFLUENZA
     Route: 048
     Dates: start: 20080413, end: 20080417
  14. SINGULAIR [Concomitant]
     Indication: HYPERSENSITIVITY
     Route: 048
     Dates: start: 2003

REACTIONS (3)
  - Lipase increased [Recovered/Resolved]
  - Headache [Recovered/Resolved]
  - Hypophysitis [Recovered/Resolved]
